FAERS Safety Report 6619732-X (Version None)
Quarter: 2010Q1

REPORT INFORMATION
  Report Type: 
  Country: None (occurrence: None)
  Receive Date: 20100309
  Receipt Date: 20100224
  Transmission Date: 20100710
  Serious: Yes (Hospitalization)
  Sender: FDA-Public Use
  Company Number: PHEH2009US07913

PATIENT

DRUGS (5)
  1. RECLAST [Suspect]
     Dosage: UNK
     Dates: start: 20090429, end: 20090429
  2. PREDNISONE [Concomitant]
     Dosage: UNK, UNK
     Route: 065
  3. MULTI-VITAMINS [Concomitant]
     Dosage: UNK, UNK
     Route: 065
  4. VITAMIN D [Concomitant]
     Dosage: UNK, UNK
     Route: 065
  5. VITAMIN B-12 [Concomitant]
     Dosage: UNK, UNK
     Route: 065

REACTIONS (12)
  - ABDOMINAL DISCOMFORT [None]
  - ARTHRALGIA [None]
  - BLOOD POTASSIUM DECREASED [None]
  - BONE DISORDER [None]
  - DEHYDRATION [None]
  - DIARRHOEA [None]
  - MALAISE [None]
  - NEPHROLITHIASIS [None]
  - PNEUMONIA [None]
  - RHEUMATOID ARTHRITIS [None]
  - VIRAL INFECTION [None]
  - VOMITING [None]
